FAERS Safety Report 5612517-2 (Version None)
Quarter: 2008Q1

REPORT INFORMATION
  Report Type: 
  Country: None (occurrence: None)
  Receive Date: 20080201
  Receipt Date: 20080201
  Transmission Date: 20080703
  Serious: Yes (Disabling)
  Sender: FDA-Public Use
  Company Number: None

PATIENT
  Age: 44 Year
  Sex: Male
  Weight: 96.6162 kg

DRUGS (1)
  1. CELEXA [Suspect]
     Indication: ANXIETY
     Dosage: 20 MG  T1 TAB PO QD  PO
     Route: 048
     Dates: start: 20080117, end: 20080124

REACTIONS (6)
  - AGITATION [None]
  - ANXIETY [None]
  - CONDITION AGGRAVATED [None]
  - INSOMNIA [None]
  - RESTLESSNESS [None]
  - SEROTONIN SYNDROME [None]
